FAERS Safety Report 17070721 (Version 3)
Quarter: 2020Q1

REPORT INFORMATION
  Report Type: Spontaneous
  Country: US (occurrence: US)
  Receive Date: 20191125
  Receipt Date: 20200129
  Transmission Date: 20200409
  Serious: Yes (Hospitalization, Other)
  Sender: FDA-Public Use
  Company Number: US-PFIZER INC-2019503475

PATIENT
  Age: 59 Year
  Sex: Female
  Weight: 79 kg

DRUGS (8)
  1. LASIX [Concomitant]
     Active Substance: FUROSEMIDE
     Dosage: 20 MG, DAILY
  2. PROTONIX [OMEPRAZOLE] [Concomitant]
     Active Substance: OMEPRAZOLE
     Dosage: 40 MG, DAILY
  3. REVATIO [Suspect]
     Active Substance: SILDENAFIL CITRATE
     Dosage: 20 MG, 3X/DAY
     Route: 048
     Dates: start: 201709
  4. REVATIO [Suspect]
     Active Substance: SILDENAFIL CITRATE
     Indication: PULMONARY ARTERIAL HYPERTENSION
     Dosage: 20 MG, 3X/DAY
     Dates: start: 201711
  5. VELETRI [Concomitant]
     Active Substance: EPOPROSTENOL
     Indication: PULMONARY HYPERTENSION
     Dosage: UNK (22.6 NANOGRAMS PER KG/MIN, USE 83ML PER 24 HOURS BY CONSTANT IV INFUSION)
     Route: 042
     Dates: start: 201705
  6. ASPIRIN [ACETYLSALICYLIC ACID] [Concomitant]
     Active Substance: ASPIRIN
     Dosage: 81 MG, DAILY
  7. PROSTACYCLIN [Concomitant]
     Active Substance: EPOPROSTENOL
     Dosage: UNK
  8. REVATIO [Suspect]
     Active Substance: SILDENAFIL CITRATE
     Indication: PULMONARY HYPERTENSION
     Dosage: 20 MG, 3X/DAY (ONE TABLETS BY MOUTH THREE TIMES DAILY)
     Route: 048
     Dates: start: 201710

REACTIONS (12)
  - Dehydration [Recovered/Resolved]
  - Gastric neoplasm [Not Recovered/Not Resolved]
  - Sepsis [Recovered/Resolved]
  - Vomiting [Recovered/Resolved]
  - Pyrexia [Unknown]
  - Pulmonary hypertension [Not Recovered/Not Resolved]
  - Nausea [Unknown]
  - Urinary tract infection enterococcal [Recovered/Resolved]
  - Malaise [Unknown]
  - Pancreatitis [Recovered/Resolved]
  - Gastric polyps [Not Recovered/Not Resolved]
  - Pancreatic neoplasm [Recovered/Resolved]

NARRATIVE: CASE EVENT DATE: 2017
